FAERS Safety Report 8767263 (Version 1)
Quarter: 2012Q4

REPORT INFORMATION
  Report Type: 
  Country: FR (occurrence: FR)
  Receive Date: 20120904
  Receipt Date: 20120904
  Transmission Date: 20130627
  Serious: Yes (Hospitalization)
  Sender: FDA-Public Use
  Company Number: FR-GLAXOSMITHKLINE-B0824754A

PATIENT
  Age: 79 Year
  Sex: Female

DRUGS (9)
  1. ARIXTRA [Suspect]
     Indication: DEEP VEIN THROMBOSIS
     Route: 058
     Dates: start: 20120703, end: 20120713
  2. PREVISCAN [Suspect]
     Indication: DEEP VEIN THROMBOSIS
     Dosage: 20MG Unknown
     Route: 048
     Dates: start: 20120714, end: 20120720
  3. SERETIDE [Concomitant]
     Indication: PRODUCT USED FOR UNKNOWN INDICATION
     Route: 065
  4. AVLOCARDYL [Concomitant]
     Indication: PRODUCT USED FOR UNKNOWN INDICATION
     Route: 065
  5. AERIUS [Concomitant]
     Route: 065
  6. ACUILIX [Concomitant]
     Route: 065
  7. ARTOTEC [Concomitant]
     Route: 065
  8. BETAHISTINE [Concomitant]
     Route: 065
  9. PARACETAMOL [Concomitant]
     Route: 065

REACTIONS (5)
  - Toxic epidermal necrolysis [Recovering/Resolving]
  - Urticaria [Unknown]
  - Dermatitis exfoliative [Unknown]
  - Renal failure [Unknown]
  - Skin disorder [Unknown]
